FAERS Safety Report 7943145-1 (Version None)
Quarter: 2011Q4

REPORT INFORMATION
  Report Type: 
  Country: None (occurrence: None)
  Receive Date: 20111128
  Receipt Date: 20111117
  Transmission Date: 20120403
  Serious: Yes (Hospitalization)
  Sender: FDA-Public Use
  Company Number: PHHY2011IT21002

PATIENT
  Sex: Male

DRUGS (8)
  1. ANTICOAGULANTS [Concomitant]
  2. NEORAL [Concomitant]
     Dosage: 75 MG, UNK
     Route: 048
     Dates: start: 20051130
  3. LESCOL [Concomitant]
     Dosage: 20 MG, UNK
     Route: 048
     Dates: start: 20051220
  4. ASPIRIN [Concomitant]
     Dosage: 75 MG, UNK
     Route: 048
     Dates: start: 20071029
  5. BISOPROLOL FUMARATE [Concomitant]
     Dosage: 2.5 MG, UNK
     Route: 048
     Dates: start: 20060421
  6. LASIX [Concomitant]
     Dosage: 25 MG, UNK
     Route: 048
     Dates: start: 20051221
  7. CERTICAN [Suspect]
     Indication: PROPHYLAXIS AGAINST TRANSPLANT REJECTION
     Dosage: 1.5 MG, UNK
     Dates: start: 20071018
  8. LANSOPRAZOLE [Concomitant]
     Dosage: 30 MG, UNK
     Route: 048
     Dates: start: 20080116

REACTIONS (2)
  - DEEP VEIN THROMBOSIS [None]
  - PULMONARY EMBOLISM [None]
